FAERS Safety Report 4734118-0 (Version None)
Quarter: 2005Q3

REPORT INFORMATION
  Report Type: 
  Country: None (occurrence: None)
  Receive Date: 20050803
  Receipt Date: 20050803
  Transmission Date: 20060218
  Serious: Yes (Other)
  Sender: FDA-Public Use
  Company Number: None

PATIENT
  Age: 67 Year
  Sex: Male

DRUGS (8)
  1. IRON DEXTRAN [Suspect]
     Dosage: 300MG X1 INTRAVENOUS
  2. METFORMIN [Concomitant]
  3. AVANDIA [Concomitant]
  4. METOPROLOL [Concomitant]
  5. AMARYL [Concomitant]
  6. XANAX [Concomitant]
  7. LANTUS [Concomitant]
  8. DARVOCET [Concomitant]

REACTIONS (3)
  - BACK PAIN [None]
  - BURNING SENSATION [None]
  - PRURITUS [None]
